FAERS Safety Report 12362747 (Version 1)
Quarter: 2016Q2

REPORT INFORMATION
  Report Type: Spontaneous
  Country: US (occurrence: US)
  Receive Date: 20160512
  Receipt Date: 20160512
  Transmission Date: 20160815
  Serious: Yes (Other)
  Sender: FDA-Public Use
  Company Number: US-009507513-1504USA010236

PATIENT
  Age: 85 Year
  Sex: Male
  Weight: 84 kg

DRUGS (12)
  1. CUBICIN [Suspect]
     Active Substance: DAPTOMYCIN
     Indication: STAPHYLOCOCCAL INFECTION
     Dosage: 375 MG, Q24H
     Route: 042
     Dates: start: 20060104, end: 20060221
  2. CUBICIN [Suspect]
     Active Substance: DAPTOMYCIN
     Dosage: 375 MG, Q24H
     Route: 042
     Dates: start: 20051214, end: 20051222
  3. RIFAMPIN. [Concomitant]
     Active Substance: RIFAMPIN
     Dosage: 300 MG, TID
     Route: 048
  4. SIMVASTATIN. [Concomitant]
     Active Substance: SIMVASTATIN
     Dosage: 20 MG, QD
     Route: 048
  5. GENTAMICIN. [Concomitant]
     Active Substance: GENTAMICIN
     Dosage: DAILY DOSE UNKNOWN
  6. NAPROXEN. [Concomitant]
     Active Substance: NAPROXEN
     Dosage: UNK, PRN
  7. ASPIRIN. [Concomitant]
     Active Substance: ASPIRIN
     Dosage: 81 MG, Q24H
  8. TAMSULOSIN HYDROCHLORIDE. [Concomitant]
     Active Substance: TAMSULOSIN HYDROCHLORIDE
     Dosage: 0.4 MG, QD
  9. VITAMINS (UNSPECIFIED) [Concomitant]
     Active Substance: VITAMINS
     Dosage: DAILY DOSE UNKNOWN
  10. CUBICIN [Suspect]
     Active Substance: DAPTOMYCIN
     Dosage: 4 MG/KG, Q24H
     Route: 042
     Dates: start: 20051214, end: 20051222
  11. CUBICIN [Suspect]
     Active Substance: DAPTOMYCIN
     Dosage: 4 MG/KG, Q24H
     Route: 042
     Dates: start: 20060104, end: 20060221
  12. IRON (UNSPECIFIED) [Concomitant]
     Active Substance: IRON
     Dosage: DAILY DOSE UNKNOWN

REACTIONS (12)
  - Organising pneumonia [Recovering/Resolving]
  - Red blood cell sedimentation rate increased [Recovering/Resolving]
  - Decreased appetite [Recovered/Resolved]
  - Pyrexia [Recovering/Resolving]
  - Malaise [Recovering/Resolving]
  - Anaemia [Recovering/Resolving]
  - Nausea [Recovered/Resolved]
  - Fatigue [Recovered/Resolved]
  - Asthenia [Recovering/Resolving]
  - Weight decreased [Recovered/Resolved]
  - Depressed mood [Recovering/Resolving]
  - Pulmonary eosinophilia [Recovering/Resolving]

NARRATIVE: CASE EVENT DATE: 2005
